FAERS Safety Report 17860408 (Version 2)
Quarter: 2020Q2

REPORT INFORMATION
  Report Type: Spontaneous
  Country: HU (occurrence: HU)
  Receive Date: 20200604
  Receipt Date: 20200617
  Transmission Date: 20200714
  Serious: Yes (Other)
  Sender: FDA-Public Use
  Company Number: NVSC2020HU154942

PATIENT
  Age: 60 Year
  Sex: Male

DRUGS (7)
  1. GLIVEC [Suspect]
     Active Substance: IMATINIB MESYLATE
     Indication: PRODUCT USED FOR UNKNOWN INDICATION
     Dosage: 400 MG, QD
     Route: 065
  2. GLIVEC [Suspect]
     Active Substance: IMATINIB MESYLATE
     Dosage: 600 MG
     Route: 065
  3. TASIGNA [Suspect]
     Active Substance: NILOTINIB
     Indication: PRODUCT USED FOR UNKNOWN INDICATION
     Route: 065
  4. GLIVEC [Suspect]
     Active Substance: IMATINIB MESYLATE
     Dosage: 200 MG (1X)
     Route: 065
     Dates: start: 2017
  5. GLIVEC [Suspect]
     Active Substance: IMATINIB MESYLATE
     Dosage: 600 MG, QD
     Route: 065
     Dates: start: 201905
  6. GLIVEC [Suspect]
     Active Substance: IMATINIB MESYLATE
     Dosage: 400 MG (2X)
     Route: 065
     Dates: start: 201604, end: 201702
  7. GLIVEC [Suspect]
     Active Substance: IMATINIB MESYLATE
     Dosage: 200 MG (2X)
     Route: 065
     Dates: start: 201702, end: 201712

REACTIONS (12)
  - Atrial flutter [Recovered/Resolved]
  - Hyperthyroidism [Unknown]
  - Conjunctivitis [Unknown]
  - Aortic valve stenosis [Unknown]
  - Eye haemorrhage [Unknown]
  - Endocrine ophthalmopathy [Unknown]
  - Eye irritation [Unknown]
  - Dry eye [Unknown]
  - Atrial fibrillation [Recovered/Resolved]
  - Eye pain [Unknown]
  - Tachycardia [Recovered/Resolved]
  - Periorbital oedema [Unknown]

NARRATIVE: CASE EVENT DATE: 201407
